FAERS Safety Report 25165551 (Version 1)
Quarter: 2025Q2

REPORT INFORMATION
  Report Type: Spontaneous
  Country: CN (occurrence: CN)
  Receive Date: 20250407
  Receipt Date: 20250407
  Transmission Date: 20250716
  Serious: Yes (Hospitalization)
  Sender: BEIGENE
  Company Number: CN-BEIGENE-BGN-2025-005132

PATIENT
  Age: 67 Year
  Weight: 51 kg

DRUGS (8)
  1. TISLELIZUMAB [Suspect]
     Active Substance: TISLELIZUMAB
     Indication: Lung adenocarcinoma stage IV
     Dosage: 0.2 GRAM, Q3WK
  2. TISLELIZUMAB [Suspect]
     Active Substance: TISLELIZUMAB
     Dosage: 0.2 GRAM, Q3WK
     Route: 041
  3. TISLELIZUMAB [Suspect]
     Active Substance: TISLELIZUMAB
     Dosage: 0.2 GRAM, Q3WK
     Route: 041
  4. TISLELIZUMAB [Suspect]
     Active Substance: TISLELIZUMAB
     Dosage: 0.2 GRAM, Q3WK
  5. CLOZAPINE [Suspect]
     Active Substance: CLOZAPINE
     Indication: Lung adenocarcinoma stage IV
     Dosage: 35 MILLIGRAM, QD
     Route: 042
  6. CLOZAPINE [Suspect]
     Active Substance: CLOZAPINE
     Dosage: 35 MILLIGRAM, QD
  7. ENDOSTATIN [Suspect]
     Active Substance: ENDOSTATIN
     Indication: Lung adenocarcinoma stage IV
     Dosage: 210 MILLIGRAM, QD
  8. VINORELBINE [Concomitant]
     Active Substance: VINORELBINE TARTRATE
     Indication: Lung adenocarcinoma stage IV

REACTIONS (1)
  - Liver injury [Recovering/Resolving]
